FAERS Safety Report 4979319-1 (Version None)
Quarter: 2006Q2

REPORT INFORMATION
  Report Type: 
  Country: None (occurrence: None)
  Receive Date: 20060421
  Receipt Date: 20051221
  Transmission Date: 20061013
  Serious: Yes (Hospitalization, Disabling)
  Sender: FDA-Public Use
  Company Number: US-MERCK-0512USA03440

PATIENT
  Age: 51 Year
  Sex: Male
  Weight: 100 kg

DRUGS (4)
  1. VIOXX [Suspect]
     Indication: MONARTHRITIS
     Route: 048
     Dates: start: 20020901, end: 20040201
  2. ZITHROMAX [Concomitant]
     Route: 065
  3. PRILOSEC [Concomitant]
     Indication: GASTRIC DISORDER
     Route: 065
  4. TYLENOL (CAPLET) [Concomitant]
     Indication: HEADACHE
     Route: 065
     Dates: start: 19900101

REACTIONS (5)
  - ARTERIOSCLEROSIS [None]
  - CARDIAC DISORDER [None]
  - HYPERLIPIDAEMIA [None]
  - MYOCARDIAL INFARCTION [None]
  - PNEUMONIA [None]
